FAERS Safety Report 6793274-3 (Version None)
Quarter: 2010Q2

REPORT INFORMATION
  Report Type: 
  Country: None (occurrence: None)
  Receive Date: 20100624
  Receipt Date: 20091102
  Transmission Date: 20101027
  Serious: Yes (Other)
  Sender: FDA-Public Use
  Company Number: US-MYLANLABS-2009S1017891

PATIENT
  Age: 35 Year
  Sex: Male
  Weight: 125.19 kg

DRUGS (6)
  1. CLOZAPINE [Suspect]
     Indication: PSYCHOTIC DISORDER
     Route: 048
     Dates: end: 20090929
  2. CLOZAPINE [Suspect]
     Route: 048
     Dates: end: 20090929
  3. CLOZAPINE [Suspect]
     Route: 048
     Dates: start: 20091005
  4. CLOZAPINE [Suspect]
     Route: 048
     Dates: start: 20091005
  5. CLOZAPINE [Suspect]
     Route: 048
     Dates: start: 20091005
  6. DEPAKOTE [Concomitant]
     Route: 048

REACTIONS (2)
  - GRANULOCYTOPENIA [None]
  - LEUKOPENIA [None]
